FAERS Safety Report 17226438 (Version 2)
Quarter: 2025Q3

REPORT INFORMATION
  Report Type: Spontaneous
  Country: EU (occurrence: EU)
  Receive Date: 20200102
  Receipt Date: 20250822
  Transmission Date: 20251021
  Serious: No
  Sender: BAUSCH AND LOMB
  Company Number: EU-009507513-1909ESP004988

PATIENT
  Age: 51 Year
  Sex: Female

DRUGS (6)
  1. RIBAVIRIN [Suspect]
     Active Substance: RIBAVIRIN
     Indication: Chronic hepatitis C
     Route: 065
  2. RIBAVIRIN [Suspect]
     Active Substance: RIBAVIRIN
     Indication: Hepatic cirrhosis
  3. TELAPREVIR [Suspect]
     Active Substance: TELAPREVIR
     Indication: Chronic hepatitis C
     Route: 065
  4. TELAPREVIR [Suspect]
     Active Substance: TELAPREVIR
     Indication: Hepatic cirrhosis
  5. INTERFERON ALFA NOS [Suspect]
     Active Substance: INTERFERON ALFA-2A OR INTERFERON ALFA-2B
     Indication: Chronic hepatitis C
     Route: 065
  6. INTERFERON ALFA NOS [Suspect]
     Active Substance: INTERFERON ALFA-2A OR INTERFERON ALFA-2B
     Indication: Hepatic cirrhosis

REACTIONS (1)
  - Cutaneous sarcoidosis [Recovered/Resolved]
